FAERS Safety Report 7605825-7 (Version None)
Quarter: 2011Q3

REPORT INFORMATION
  Report Type: 
  Country: None (occurrence: None)
  Receive Date: 20110713
  Receipt Date: 20110705
  Transmission Date: 20111222
  Serious: Yes (Other)
  Sender: FDA-Public Use
  Company Number: US-BAYER-2011-052632

PATIENT
  Age: 32 Year
  Sex: Female

DRUGS (4)
  1. FLAGYL [Concomitant]
     Indication: VAGINITIS BACTERIAL
  2. DIFLUCAN [Concomitant]
     Indication: PROPHYLAXIS
  3. YASMIN [Concomitant]
     Indication: ORAL CONTRACEPTION
  4. MIRENA [Suspect]
     Indication: CONTRACEPTION
     Dosage: 20 ?G, CONT
     Route: 015
     Dates: start: 20110114, end: 20110606

REACTIONS (14)
  - VULVOVAGINAL BURNING SENSATION [None]
  - NAUSEA [None]
  - HORMONE LEVEL ABNORMAL [None]
  - OVARIAN CYST RUPTURED [None]
  - DIZZINESS [None]
  - GENITAL RASH [None]
  - MENOMETRORRHAGIA [None]
  - VULVOVAGINAL PRURITUS [None]
  - HAEMORRHAGIC ANAEMIA [None]
  - ABDOMINAL PAIN [None]
  - BACK PAIN [None]
  - DISCOMFORT [None]
  - ASTHENIA [None]
  - GENITAL HAEMORRHAGE [None]
